FAERS Safety Report 9011780 (Version 1)
Quarter: 2012Q4

REPORT INFORMATION
  Report Type: Spontaneous
  Country: US (occurrence: None)
  Receive Date: 20121228
  Receipt Date: 20121228
  Transmission Date: 20130627
  Serious: Yes (Hospitalization)
  Sender: FDA-Public Use
  Company Number: FK201204147

PATIENT
  Age: 41 Year
  Sex: Female
  Weight: 66 kg

DRUGS (3)
  1. CARBOPOLATIN [Suspect]
     Indication: OVARIAN CANCER
     Dates: start: 20091113, end: 20091201
  2. MORAB - 003 [Suspect]
     Indication: OVARIAN CANCER
     Route: 042
     Dates: start: 20091113, end: 20091201
  3. PACLITAXEL (PACLITAXEL) [Concomitant]

REACTIONS (1)
  - Anaphylactic reaction [None]
